FAERS Safety Report 15366612 (Version 1)
Quarter: 2018Q3

REPORT INFORMATION
  Report Type: Spontaneous
  Country: US (occurrence: US)
  Receive Date: 20180901
  Receipt Date: 20180901
  Transmission Date: 20181010
  Serious: Yes (Other)
  Sender: FDA-Public Use
  Company Number: None

PATIENT
  Age: 54 Year
  Sex: Female
  Weight: 74.25 kg

DRUGS (5)
  1. OCEAN SALINE NASAL SPRAY [Suspect]
     Active Substance: SODIUM CHLORIDE
     Indication: NASAL DRYNESS
     Dates: start: 20180801, end: 20180831
  2. KLONIPIN [Concomitant]
     Active Substance: CLONAZEPAM
  3. OCEAN SALINE NASAL SPRAY [Suspect]
     Active Substance: SODIUM CHLORIDE
     Indication: MULTIPLE ALLERGIES
     Dates: start: 20180801, end: 20180831
  4. VITAMIN D [Concomitant]
     Active Substance: CHOLECALCIFEROL
  5. ZEBETA [Concomitant]
     Active Substance: BISOPROLOL FUMARATE

REACTIONS (1)
  - Sinusitis [None]

NARRATIVE: CASE EVENT DATE: 20180810
